FAERS Safety Report 7928235-1 (Version None)
Quarter: 2011Q4

REPORT INFORMATION
  Report Type: 
  Country: None (occurrence: None)
  Receive Date: 20111118
  Receipt Date: 20111114
  Transmission Date: 20120403
  Serious: Yes (Other)
  Sender: FDA-Public Use
  Company Number: US-SANOFI-AVENTIS-2011SA075138

PATIENT

DRUGS (2)
  1. ASPIRIN [Concomitant]
  2. PLAVIX [Suspect]

REACTIONS (1)
  - TRANSIENT ISCHAEMIC ATTACK [None]
